FAERS Safety Report 8345428-2 (Version None)
Quarter: 2012Q2

REPORT INFORMATION
  Report Type: 
  Country: None (occurrence: None)
  Receive Date: 20120504
  Receipt Date: 20120424
  Transmission Date: 20120825
  Serious: Yes (Hospitalization, Other)
  Sender: FDA-Public Use
  Company Number: INT_00068_2012

PATIENT
  Age: 6 Year
  Sex: Female

DRUGS (4)
  1. MEROPENEM [Suspect]
     Indication: NASOPHARYNGITIS
     Dosage: (60 MG/KG/DAY EVERY 8 HOURS INTRAVENOUS (NOT OTHERWISE SPECIFIED)
     Route: 042
  2. MEROPENEM [Suspect]
     Indication: COUGH
     Dosage: (60 MG/KG/DAY EVERY 8 HOURS INTRAVENOUS (NOT OTHERWISE SPECIFIED)
     Route: 042
  3. MEROPENEM [Suspect]
     Indication: PYREXIA
     Dosage: (60 MG/KG/DAY EVERY 8 HOURS INTRAVENOUS (NOT OTHERWISE SPECIFIED)
     Route: 042
  4. MEROPENEM [Suspect]
     Indication: MYALGIA
     Dosage: (60 MG/KG/DAY EVERY 8 HOURS INTRAVENOUS (NOT OTHERWISE SPECIFIED)
     Route: 042

REACTIONS (3)
  - REFUSAL OF TREATMENT BY PATIENT [None]
  - HYPOKALAEMIA [None]
  - METABOLIC ALKALOSIS [None]
